FAERS Safety Report 7044419-1 (Version None)
Quarter: 2010Q4

REPORT INFORMATION
  Report Type: 
  Country: None (occurrence: None)
  Receive Date: 20101014
  Receipt Date: 20101006
  Transmission Date: 20110411
  Serious: Yes (Death)
  Sender: FDA-Public Use
  Company Number: US-KINGPHARMUSA00001-K201001234

PATIENT
  Age: 50 Year
  Sex: Female

DRUGS (2)
  1. EMBEDA [Suspect]
     Indication: PAIN
     Dosage: UNK
  2. DIET FORMULATIONS FOR TREATMENT OF OBESITY [Concomitant]
     Dosage: UNK

REACTIONS (1)
  - DEATH [None]
